FAERS Safety Report 20838851 (Version 3)
Quarter: 2022Q4

REPORT INFORMATION
  Report Type: Report from Study
  Country: JP (occurrence: JP)
  Receive Date: 20220517
  Receipt Date: 20221021
  Transmission Date: 20230113
  Serious: Yes (Other)
  Sender: FDA-Public Use
  Company Number: JP-SA-2021SA401304

PATIENT
  Age: 64 Year
  Sex: Male
  Weight: 65 kg

DRUGS (6)
  1. VANDETANIB [Suspect]
     Active Substance: VANDETANIB
     Indication: Medullary thyroid cancer
     Dosage: DAILY DOSE: 300 MG
     Route: 048
     Dates: start: 20210202, end: 20210222
  2. VANDETANIB [Suspect]
     Active Substance: VANDETANIB
     Dosage: DAILY DOSE: 300 MG
     Route: 048
     Dates: start: 20210308, end: 20210510
  3. VANDETANIB [Suspect]
     Active Substance: VANDETANIB
     Dosage: DAILY DOSE: 300 MG
     Route: 048
     Dates: start: 20210617, end: 20210729
  4. VANDETANIB [Suspect]
     Active Substance: VANDETANIB
     Dosage: DAILY DOSE: 200 MG
     Route: 048
     Dates: start: 20210909, end: 20220105
  5. VANDETANIB [Suspect]
     Active Substance: VANDETANIB
     Dosage: DAILY DOSE: 200 MG
     Route: 048
     Dates: start: 20220201
  6. AMLODIPINE [Suspect]
     Active Substance: AMLODIPINE BESYLATE
     Indication: Product used for unknown indication
     Route: 048

REACTIONS (4)
  - Hypokalaemia [Recovered/Resolved]
  - Malaise [Recovering/Resolving]
  - Decreased appetite [Recovering/Resolving]
  - Hypertension [Recovering/Resolving]

NARRATIVE: CASE EVENT DATE: 20210222
